FAERS Safety Report 15339526 (Version 1)
Quarter: 2018Q3

REPORT INFORMATION
  Report Type: Spontaneous
  Country: TR (occurrence: TR)
  Receive Date: 20180831
  Receipt Date: 20180831
  Transmission Date: 20181010
  Serious: Yes (Other)
  Sender: FDA-Public Use
  Company Number: TR-PFIZER INC-2018349257

PATIENT

DRUGS (1)
  1. ELELYSO [Suspect]
     Active Substance: TALIGLUCERASE ALFA
     Dosage: 60 UNITS PER KG EVERY 15 DAYS
     Dates: start: 2018

REACTIONS (2)
  - White blood cell count decreased [Unknown]
  - Thrombocytopenia [Recovering/Resolving]
